FAERS Safety Report 9267676 (Version 2)
Quarter: 2014Q1

REPORT INFORMATION
  Report Type: Report from Study
  Country: US (occurrence: US)
  Receive Date: 20130502
  Receipt Date: 20140312
  Transmission Date: 20141002
  Serious: Yes (Other)
  Sender: FDA-Public Use
  Company Number: US-ALEXION-A201200875

PATIENT
  Age: 91 Year
  Sex: Male

DRUGS (1)
  1. SOLIRIS [Suspect]
     Indication: PAROXYSMAL NOCTURNAL HAEMOGLOBINURIA
     Dosage: UNK
     Route: 042
     Dates: start: 20120502

REACTIONS (5)
  - Biopsy bone marrow [Unknown]
  - Biopsy bone marrow abnormal [Unknown]
  - Back pain [Unknown]
  - Pain in extremity [Unknown]
  - Asthenia [Unknown]
